FAERS Safety Report 24626861 (Version 1)
Quarter: 2024Q4

REPORT INFORMATION
  Report Type: Spontaneous
  Country: US (occurrence: US)
  Receive Date: 20241115
  Receipt Date: 20241115
  Transmission Date: 20250114
  Serious: Yes (Life-Threatening)
  Sender: NOVO NORDISK
  Company Number: US-NOVOPROD-1148852

PATIENT
  Age: 59 Year
  Sex: Female

DRUGS (5)
  1. NOVOLOG [Suspect]
     Active Substance: INSULIN ASPART
     Indication: Type 1 diabetes mellitus
     Dosage: UNK
     Route: 058
     Dates: start: 20170101
  2. NOVOLOG [Suspect]
     Active Substance: INSULIN ASPART
     Dosage: 22 UNITS PER DAY VIA TANDEM PUMP (MAXIMUM DOSE OF 40 IU, QD)
     Route: 058
  3. NOVOLOG [Suspect]
     Active Substance: INSULIN ASPART
     Dosage: 22 UNITS PER DAY VIA TANDEM PUMP (MAXIMUM DOSE OF 40 IU, QD)
     Route: 058
  4. NOVOLOG [Suspect]
     Active Substance: INSULIN ASPART
     Dosage: UNK
     Route: 058
  5. NOVOLOG [Suspect]
     Active Substance: INSULIN ASPART
     Dosage: 22 UNITS PER DAY VIA TANDEM PUMP (MAXIMUM DOSE OF 40 IU, QD)
     Route: 058

REACTIONS (3)
  - Blood glucose increased [Not Recovered/Not Resolved]
  - Drug ineffective [Not Recovered/Not Resolved]
  - Product quality issue [Not Recovered/Not Resolved]

NARRATIVE: CASE EVENT DATE: 20231110
